FAERS Safety Report 16099424 (Version 1)
Quarter: 2019Q1

REPORT INFORMATION
  Report Type: Spontaneous
  Country: US (occurrence: US)
  Receive Date: 20190218
  Receipt Date: 20190218
  Transmission Date: 20190418
  Serious: Yes (Death)
  Sender: FDA-Public Use
  Company Number: None

PATIENT
  Age: 54 Year
  Sex: Female
  Weight: 87.5 kg

DRUGS (1)
  1. PIPERACILLIN/TAZOBACTAM [Suspect]
     Active Substance: PIPERACILLIN SODIUM\TAZOBACTAM SODIUM
     Indication: OSTEOMYELITIS
     Dosage: 12/25 TO 12/28, REPEAT ON 12/30 TO 1/1
     Route: 042

REACTIONS (6)
  - Retching [None]
  - Haemolytic anaemia [None]
  - Rash macular [None]
  - Chills [None]
  - Cardiopulmonary failure [None]
  - Nausea [None]

NARRATIVE: CASE EVENT DATE: 20190101
